FAERS Safety Report 8366631-1 (Version None)
Quarter: 2012Q2

REPORT INFORMATION
  Report Type: 
  Country: None (occurrence: None)
  Receive Date: 20120517
  Receipt Date: 20120508
  Transmission Date: 20120825
  Serious: Yes (Other)
  Sender: FDA-Public Use
  Company Number: US-JNJFOC-20120507769

PATIENT
  Sex: Male
  Weight: 113.4 kg

DRUGS (4)
  1. VYTORIN [Concomitant]
     Indication: BLOOD CHOLESTEROL
     Dates: start: 20080101
  2. AVALIDE [Concomitant]
     Indication: HYPERTENSION
     Dosage: DAILY
     Route: 048
     Dates: start: 20020101
  3. STELARA [Suspect]
     Route: 058
     Dates: start: 20100101, end: 20101201
  4. STELARA [Suspect]
     Indication: PSORIASIS
     Route: 058
     Dates: start: 20110101

REACTIONS (4)
  - PAIN [None]
  - THERAPEUTIC RESPONSE DECREASED [None]
  - MALIGNANT MELANOMA [None]
  - PROSTATIC SPECIFIC ANTIGEN INCREASED [None]
